FAERS Safety Report 14234025 (Version 1)
Quarter: 2017Q4

REPORT INFORMATION
  Report Type: Spontaneous
  Country: US (occurrence: US)
  Receive Date: 20171129
  Receipt Date: 20171129
  Transmission Date: 20180321
  Serious: No
  Sender: FDA-Public Use
  Company Number: US-JNJFOC-20171108074

PATIENT
  Age: 12 Month
  Sex: Female

DRUGS (1)
  1. INFANTS TYLENOL [Suspect]
     Active Substance: ACETAMINOPHEN
     Indication: NASOPHARYNGITIS
     Dosage: APPROXIMATELY THREE FIVE MILLILITERS OF PRODUCT IN A TWENTY-FOUR HOUR PERIOD
     Route: 048

REACTIONS (1)
  - Rash [Not Recovered/Not Resolved]
